FAERS Safety Report 6312655-5 (Version None)
Quarter: 2009Q3

REPORT INFORMATION
  Report Type: 
  Country: None (occurrence: None)
  Receive Date: 20090818
  Receipt Date: 20090812
  Transmission Date: 20100115
  Serious: Yes (Hospitalization)
  Sender: FDA-Public Use
  Company Number: US-BIOGENIDEC-2009BI021792

PATIENT
  Age: 56 Year
  Sex: Female

DRUGS (9)
  1. TYSABRI [Suspect]
     Indication: MULTIPLE SCLEROSIS
     Route: 042
     Dates: start: 20080715
  2. METHADONE [Concomitant]
     Indication: PAIN
  3. TAGAMET [Concomitant]
     Indication: GASTROOESOPHAGEAL REFLUX DISEASE
  4. CYMBALTA [Concomitant]
  5. LEXAPRO [Concomitant]
  6. DIAZEPAM [Concomitant]
  7. CORTIZONE [Concomitant]
  8. POTASSIUM CHLORIDE [Concomitant]
  9. PREMARIN [Concomitant]

REACTIONS (2)
  - ASTHMA [None]
  - PNEUMONITIS [None]
